FAERS Safety Report 7571523-1 (Version None)
Quarter: 2011Q2

REPORT INFORMATION
  Report Type: 
  Country: None (occurrence: None)
  Receive Date: 20110624
  Receipt Date: 20110620
  Transmission Date: 20111010
  Serious: Yes (Death, Hospitalization)
  Sender: FDA-Public Use
  Company Number: US-ASTRAZENECA-2011SE37167

PATIENT
  Age: 78 Year
  Sex: Female

DRUGS (5)
  1. FASLODEX [Suspect]
     Indication: BREAST CANCER
     Route: 030
     Dates: start: 20110407
  2. ASPIRIN [Concomitant]
  3. POTASSIUM [Concomitant]
  4. LASIX [Concomitant]
  5. CLONIDINE [Concomitant]

REACTIONS (9)
  - ASPIRATION PLEURAL CAVITY ABNORMAL [None]
  - CARDIAC ENZYMES INCREASED [None]
  - VOMITING [None]
  - HEART RATE DECREASED [None]
  - FATIGUE [None]
  - CARDIAC FAILURE CONGESTIVE [None]
  - PLEURAL EFFUSION [None]
  - ASTHENIA [None]
  - DYSPNOEA [None]
